FAERS Safety Report 23669187 (Version 2)
Quarter: 2024Q2

REPORT INFORMATION
  Report Type: Spontaneous
  Country: CA (occurrence: CA)
  Receive Date: 20240325
  Receipt Date: 20240507
  Transmission Date: 20240716
  Serious: Yes (Other)
  Sender: FDA-Public Use
  Company Number: CA-BAYER-2024A041861

PATIENT
  Age: 70 Year
  Sex: Male

DRUGS (1)
  1. EYLEA [Suspect]
     Active Substance: AFLIBERCEPT
     Indication: Product used for unknown indication
     Dosage: UNK, 40 MG/ML
     Dates: start: 20230925, end: 20230925

REACTIONS (6)
  - Ophthalmoplegia [Not Recovered/Not Resolved]
  - Cataract operation [Unknown]
  - Eyelid ptosis [Not Recovered/Not Resolved]
  - Asthenopia [Not Recovered/Not Resolved]
  - Ocular hyperaemia [Not Recovered/Not Resolved]
  - Accidental exposure to product [Unknown]

NARRATIVE: CASE EVENT DATE: 20230101
